FAERS Safety Report 20230551 (Version 1)
Quarter: 2021Q4

REPORT INFORMATION
  Report Type: Spontaneous
  Country: IN (occurrence: IN)
  Receive Date: 20211227
  Receipt Date: 20211227
  Transmission Date: 20220304
  Serious: Yes (Other)
  Sender: FDA-Public Use
  Company Number: IN-SUN PHARMACEUTICAL INDUSTRIES LTD-2018R1-192087

PATIENT
  Age: 6 Year
  Sex: Female

DRUGS (1)
  1. DEFERASIROX [Suspect]
     Active Substance: DEFERASIROX
     Indication: Mineral supplementation
     Dosage: 125 MILLIGRAM, DAILY
     Route: 048

REACTIONS (2)
  - Maculopathy [Not Recovered/Not Resolved]
  - Therapy non-responder [Unknown]
